FAERS Safety Report 20314162 (Version 4)
Quarter: 2022Q4

REPORT INFORMATION
  Report Type: Spontaneous
  Country: US (occurrence: US)
  Receive Date: 20220109
  Receipt Date: 20221123
  Transmission Date: 20230113
  Serious: Yes (Other)
  Sender: FDA-Public Use
  Company Number: US-SA-SAC20220104001014

PATIENT
  Age: 55 Year
  Sex: Female

DRUGS (2)
  1. AUBAGIO [Suspect]
     Active Substance: TERIFLUNOMIDE
     Indication: Multiple sclerosis
     Dosage: 14 MG, QD
     Route: 048
     Dates: start: 20211209
  2. TECFIDERA [Concomitant]
     Active Substance: DIMETHYL FUMARATE

REACTIONS (2)
  - Multiple sclerosis relapse [Unknown]
  - Alopecia [Unknown]
